FAERS Safety Report 7583565-0 (Version None)
Quarter: 2011Q2

REPORT INFORMATION
  Report Type: 
  Country: None (occurrence: None)
  Receive Date: 20110630
  Receipt Date: 20110617
  Transmission Date: 20111010
  Serious: Yes (Death)
  Sender: FDA-Public Use
  Company Number: CA-ROCHE-784629

PATIENT
  Age: 38 Year

DRUGS (8)
  1. LORAZEPAM [Suspect]
     Route: 065
  2. OLANZAPINE [Suspect]
     Route: 065
  3. FENTANYL-100 [Suspect]
     Route: 065
  4. NORTRIPTYLINE HCL [Suspect]
     Route: 065
  5. AMITRIPTYLINE HCL [Suspect]
     Route: 065
  6. DIAZEPAM [Suspect]
     Route: 065
  7. CITALOPRAM HYDROBROMIDE [Suspect]
     Route: 065
  8. FENTANYL CITRATE [Suspect]
     Route: 065

REACTIONS (1)
  - TOXICITY TO VARIOUS AGENTS [None]
